FAERS Safety Report 5070402-1 (Version None)
Quarter: 2006Q3

REPORT INFORMATION
  Report Type: 
  Country: None (occurrence: None)
  Receive Date: 20060714
  Receipt Date: 20060412
  Transmission Date: 20061208
  Serious: No
  Sender: FDA-Public Use
  Company Number: 2006SP001679

PATIENT
  Age: 32 Year
  Sex: Female
  Weight: 204.1187 kg

DRUGS (6)
  1. LUNESTA [Suspect]
     Indication: INSOMNIA
     Dosage: 3 MG;ORAL
     Route: 048
     Dates: start: 20060411, end: 20060412
  2. GEODON [Concomitant]
  3. KLONOPIN [Concomitant]
  4. PROPRANOLOL [Concomitant]
  5. INSULIN [Concomitant]
  6. RESTORIL [Concomitant]

REACTIONS (1)
  - DYSGEUSIA [None]
